FAERS Safety Report 6311311-7 (Version None)
Quarter: 2009Q3

REPORT INFORMATION
  Report Type: 
  Country: None (occurrence: None)
  Receive Date: 20090817
  Receipt Date: 20090806
  Transmission Date: 20100115
  Serious: Yes (Other)
  Sender: FDA-Public Use
  Company Number: US-CELGENEUS-163-20785-09080605

PATIENT
  Sex: Male

DRUGS (1)
  1. THALOMID [Suspect]
     Route: 048
     Dates: start: 20090401, end: 20090101

REACTIONS (2)
  - ILEUS [None]
  - NO THERAPEUTIC RESPONSE [None]
